FAERS Safety Report 12859613 (Version 1)
Quarter: 2016Q4

REPORT INFORMATION
  Report Type: Spontaneous
  Country: US (occurrence: US)
  Receive Date: 20161018
  Receipt Date: 20161018
  Transmission Date: 20170207
  Serious: Yes (Death)
  Sender: FDA-Public Use
  Company Number: US-ACTELION-A-US2016-143701

PATIENT
  Age: 64 Year
  Sex: Male

DRUGS (5)
  1. WARFARIN [Concomitant]
     Active Substance: WARFARIN
  2. METOLAZONE. [Concomitant]
     Active Substance: METOLAZONE
     Dosage: 5 MG, UNK
  3. FUROSEMIDE. [Concomitant]
     Active Substance: FUROSEMIDE
     Dosage: 40 MG, BID
  4. TRACLEER [Suspect]
     Active Substance: BOSENTAN
     Indication: PULMONARY ARTERIAL HYPERTENSION
     Dosage: 125 MG, BID
     Route: 048
     Dates: start: 20140311, end: 20160714
  5. SILDENAFIL. [Concomitant]
     Active Substance: SILDENAFIL
     Dosage: 50 MG, TID

REACTIONS (1)
  - Death [Fatal]

NARRATIVE: CASE EVENT DATE: 20160714
